FAERS Safety Report 13737434 (Version 2)
Quarter: 2017Q3

REPORT INFORMATION
  Report Type: Spontaneous
  Country: US (occurrence: US)
  Receive Date: 20170710
  Receipt Date: 20170801
  Transmission Date: 20171127
  Serious: No
  Sender: FDA-Public Use
  Company Number: US-009507513-1706USA009289

PATIENT
  Age: 67 Year
  Sex: Female

DRUGS (4)
  1. CHLOROTHIAZIDE. [Concomitant]
     Active Substance: CHLOROTHIAZIDE
  2. JANUVIA [Suspect]
     Active Substance: SITAGLIPTIN PHOSPHATE
     Indication: TYPE 2 DIABETES MELLITUS
     Dosage: 100 MG, DAILY
     Route: 048
     Dates: start: 201601
  3. PRINIVIL [Concomitant]
     Active Substance: LISINOPRIL
     Route: 048
  4. METFORMIN [Concomitant]
     Active Substance: METFORMIN HYDROCHLORIDE

REACTIONS (10)
  - Adverse event [Unknown]
  - Blood cholesterol increased [Unknown]
  - Anaemia [Unknown]
  - Product physical issue [Unknown]
  - Product use issue [Unknown]
  - Sinusitis [Unknown]
  - Blood triglycerides increased [Unknown]
  - Palpitations [Recovered/Resolved]
  - Mitral valve prolapse [Unknown]
  - Palpitations [Unknown]

NARRATIVE: CASE EVENT DATE: 2016
